FAERS Safety Report 15005619 (Version 2)
Quarter: 2018Q3

REPORT INFORMATION
  Report Type: Spontaneous
  Country: JP (occurrence: JP)
  Receive Date: 20180613
  Receipt Date: 20180718
  Transmission Date: 20181010
  Serious: Yes (Death)
  Sender: FDA-Public Use
  Company Number: JP-SHIONOGI, INC-2018001039

PATIENT
  Age: 84 Year
  Sex: Male

DRUGS (2)
  1. OXIFAST [Concomitant]
     Active Substance: OXYCODONE
     Indication: OESOPHAGEAL CARCINOMA
     Dosage: UNK
     Route: 065
  2. SYMPROIC [Suspect]
     Active Substance: NALDEMEDINE
     Indication: CONSTIPATION
     Dosage: 0.2 MG, QD
     Route: 048

REACTIONS (4)
  - Oesophageal carcinoma [Fatal]
  - Purpura senile [Unknown]
  - Urticaria [Unknown]
  - Diarrhoea [Unknown]

NARRATIVE: CASE EVENT DATE: 20180604
